FAERS Safety Report 9925012 (Version 1)
Quarter: 2014Q1

REPORT INFORMATION
  Report Type: Spontaneous
  Country: US (occurrence: None)
  Receive Date: 20140225
  Receipt Date: 20140225
  Transmission Date: 20141002
  Serious: Yes (Other)
  Sender: FDA-Public Use
  Company Number: None

PATIENT
  Age: 44 Year
  Sex: Male
  Weight: 106.14 kg

DRUGS (2)
  1. SYSTANE ULTRA [Suspect]
     Indication: DRY EYE
     Dosage: 1-2 DROPS AS NEEDED INTO THE EYE
     Route: 031
     Dates: start: 20140224, end: 20140224
  2. SYSTANE ULTRA [Suspect]
     Indication: BLEPHARITIS
     Dosage: 1-2 DROPS AS NEEDED INTO THE EYE
     Route: 031
     Dates: start: 20140224, end: 20140224

REACTIONS (2)
  - Eye irritation [None]
  - Vision blurred [None]
